FAERS Safety Report 8345939-X (Version None)
Quarter: 2012Q2

REPORT INFORMATION
  Report Type: 
  Country: None (occurrence: None)
  Receive Date: 20120507
  Receipt Date: 20120424
  Transmission Date: 20120825
  Serious: Yes (Disabling)
  Sender: FDA-Public Use
  Company Number: 2011MA015549

PATIENT
  Sex: Female
  Weight: 76.2043 kg

DRUGS (2)
  1. PEPCID [Concomitant]
  2. METOCLOPRAMIDE [Suspect]
     Indication: GASTROOESOPHAGEAL REFLUX DISEASE
     Dosage: 10 MG;AC AND HS
     Dates: start: 20060301, end: 20070301

REACTIONS (12)
  - EMOTIONAL DISORDER [None]
  - GASTRIC POLYPS [None]
  - MUSCLE DISORDER [None]
  - GAIT DISTURBANCE [None]
  - MUSCLE TWITCHING [None]
  - WEIGHT DECREASED [None]
  - MUSCULOSKELETAL DISORDER [None]
  - DYSTONIA [None]
  - DISABILITY [None]
  - ECONOMIC PROBLEM [None]
  - INJURY [None]
  - DIVERTICULUM [None]
